FAERS Safety Report 4377278-6 (Version None)
Quarter: 2004Q2

REPORT INFORMATION
  Report Type: 
  Country: None (occurrence: None)
  Receive Date: 20040615
  Receipt Date: 20040603
  Transmission Date: 20050107
  Serious: Yes (Other)
  Sender: FDA-Public Use
  Company Number: NSADSS2002025831

PATIENT
  Sex: Female
  Weight: 51.71 kg

DRUGS (5)
  1. REMICADE [Suspect]
     Route: 041
     Dates: start: 19990510
  2. REMICADE [Suspect]
     Indication: CROHN'S DISEASE
     Route: 041
     Dates: start: 19990510
  3. SULFASALAZINE [Concomitant]
     Route: 049
  4. LOMOTIL [Concomitant]
  5. FOLIC ACID [Concomitant]

REACTIONS (2)
  - ANAEMIA [None]
  - THROMBOCYTOPENIA [None]
